FAERS Safety Report 8593959-2 (Version None)
Quarter: 2012Q3

REPORT INFORMATION
  Report Type: 
  Country: None (occurrence: None)
  Receive Date: 20120814
  Receipt Date: 20120808
  Transmission Date: 20120928
  Serious: Yes (Other)
  Sender: FDA-Public Use
  Company Number: DE-EISAI INC-E2020-11182-SPO-DE

PATIENT
  Age: 67 Year
  Sex: Male

DRUGS (1)
  1. DONEPEZIL HCL [Suspect]
     Route: 048
     Dates: start: 20120731

REACTIONS (1)
  - VENTRICULAR TACHYCARDIA [None]
